FAERS Safety Report 9733935 (Version 1)
Quarter: 2013Q4

REPORT INFORMATION
  Report Type: Spontaneous
  Country: CH (occurrence: CH)
  Receive Date: 20131205
  Receipt Date: 20131205
  Transmission Date: 20140711
  Serious: Yes (Life-Threatening, Hospitalization, Other)
  Sender: FDA-Public Use
  Company Number: CH-BRISTOL-MYERS SQUIBB COMPANY-19856061

PATIENT
  Age: 55 Year
  Sex: Male

DRUGS (8)
  1. REYATAZ CAPS 300 MG [Suspect]
     Indication: HIV INFECTION
     Dosage: CAPS.
     Route: 048
  2. KETALGIN [Interacting]
     Dosage: TABS.?STRENGTH:20 MG.
     Route: 048
  3. NORVIR [Interacting]
     Indication: HIV INFECTION
     Dosage: CAPS.
     Route: 048
  4. METHADONE HCL [Suspect]
  5. ZIAGEN [Concomitant]
     Route: 048
  6. 3TC [Concomitant]
     Dosage: FILM COATED TABS.?STRENGTH:300 MG.
     Route: 048
  7. FOLIC ACID [Concomitant]
     Route: 048
  8. PRAVASTATIN SODIUM [Concomitant]
     Route: 048

REACTIONS (2)
  - Electrocardiogram QT prolonged [Unknown]
  - Drug interaction [Unknown]
